FAERS Safety Report 4574458-1 (Version None)
Quarter: 2005Q1

REPORT INFORMATION
  Report Type: 
  Country: None (occurrence: None)
  Receive Date: 20050204
  Receipt Date: 20041206
  Transmission Date: 20050727
  Serious: Yes (Other)
  Sender: FDA-Public Use
  Company Number: 2004118037

PATIENT
  Sex: Female
  Weight: 69.8539 kg

DRUGS (5)
  1. BEXTRA [Suspect]
     Indication: ARTHRITIS
     Dosage: 20 MG (20 MG, 1 IN 1 D), ORAL
     Route: 048
  2. ROFECOXIB [Suspect]
     Indication: ARTHRITIS
     Dosage: ORAL
     Route: 048
  3. VITAMINS (VITAMINS) [Concomitant]
  4. GLUCOSAMINE W/CHONDROITIN SULFATES (ASCORBIC ACID, CHONDROITIN SULFATE [Concomitant]
  5. HYZAAR [Concomitant]

REACTIONS (2)
  - HAEMARTHROSIS [None]
  - MUSCLE SPASMS [None]
